FAERS Safety Report 13677407 (Version 1)
Quarter: 2017Q2

REPORT INFORMATION
  Report Type: Spontaneous
  Country: US (occurrence: US)
  Receive Date: 20170621
  Receipt Date: 20170621
  Transmission Date: 20170830
  Serious: Yes (Disabling, Other)
  Sender: FDA-Public Use
  Company Number: None

PATIENT
  Age: 36 Year
  Sex: Female
  Weight: 54 kg

DRUGS (3)
  1. CLONAZAPEM [Suspect]
     Active Substance: CLONAZEPAM
     Indication: SLEEP DISORDER
  2. DEXILANT [Concomitant]
     Active Substance: DEXLANSOPRAZOLE
  3. DEPO-PROVERA [Concomitant]
     Active Substance: MEDROXYPROGESTERONE ACETATE

REACTIONS (29)
  - Insomnia [None]
  - Seizure [None]
  - Withdrawal syndrome [None]
  - Fatigue [None]
  - Hyperpyrexia [None]
  - Weight increased [None]
  - Headache [None]
  - Apathy [None]
  - Toothache [None]
  - Dry skin [None]
  - Parosmia [None]
  - Dysgeusia [None]
  - Muscle spasms [None]
  - Constipation [None]
  - Depression [None]
  - Altered visual depth perception [None]
  - Irritability [None]
  - Sinusitis [None]
  - Pruritus [None]
  - Panic attack [None]
  - Restlessness [None]
  - Suicidal ideation [None]
  - Anxiety [None]
  - Intrusive thoughts [None]
  - Muscular weakness [None]
  - Depressed level of consciousness [None]
  - Agoraphobia [None]
  - Dyspnoea [None]
  - Chest discomfort [None]
